FAERS Safety Report 7351562-6 (Version None)
Quarter: 2011Q1

REPORT INFORMATION
  Report Type: 
  Country: None (occurrence: None)
  Receive Date: 20110314
  Receipt Date: 20110304
  Transmission Date: 20110831
  Serious: Yes (Hospitalization, Other)
  Sender: FDA-Public Use
  Company Number: US-AMGEN-USASP2011012628

PATIENT
  Sex: Male
  Weight: 4.082 kg

DRUGS (1)
  1. ENBREL [Suspect]
     Dosage: UNK

REACTIONS (5)
  - HAEMORRHAGE [None]
  - MENINGITIS NEONATAL [None]
  - URINARY TRACT INFECTION NEONATAL [None]
  - JAUNDICE NEONATAL [None]
  - EAR INFECTION [None]
